FAERS Safety Report 6530170-0 (Version None)
Quarter: 2010Q1

REPORT INFORMATION
  Report Type: 
  Country: None (occurrence: None)
  Receive Date: 20100107
  Receipt Date: 20091228
  Transmission Date: 20100710
  Serious: Yes (Other)
  Sender: FDA-Public Use
  Company Number: US-BAYER-200943779NA

PATIENT
  Age: 37 Year
  Sex: Female

DRUGS (2)
  1. ULTRAVIST 300 [Suspect]
     Indication: COMPUTERISED TOMOGRAM ABDOMEN
     Dosage: TOTAL DAILY DOSE: 100 ML  UNIT DOSE: 150 ML
     Route: 042
     Dates: start: 20091224, end: 20091224
  2. READI-CAT [Concomitant]
     Dosage: GIVEN 2 HOURS AND 15 MINUTES PRIOR TO EXAM
     Route: 048
     Dates: start: 20091224, end: 20091224

REACTIONS (2)
  - PRURITUS GENERALISED [None]
  - SNEEZING [None]
